FAERS Safety Report 6700244-X (Version None)
Quarter: 2010Q2

REPORT INFORMATION
  Report Type: 
  Country: None (occurrence: None)
  Receive Date: 20100428
  Receipt Date: 20100416
  Transmission Date: 20101027
  Serious: Yes (Other)
  Sender: FDA-Public Use
  Company Number: CN-PFIZER INC-2010048023

PATIENT
  Age: 72 Year
  Sex: Female

DRUGS (1)
  1. VFEND [Suspect]
     Indication: ASPERGILLOSIS
     Dosage: 200 MG, 2X/DAY
     Route: 042
     Dates: start: 20100404

REACTIONS (8)
  - BACK PAIN [None]
  - BLOOD ALBUMIN DECREASED [None]
  - CHEST PAIN [None]
  - ERYTHROPSIA [None]
  - FACE OEDEMA [None]
  - OEDEMA PERIPHERAL [None]
  - VISION BLURRED [None]
  - XANTHOPSIA [None]
